FAERS Safety Report 13340908 (Version 2)
Quarter: 2017Q2

REPORT INFORMATION
  Report Type: Spontaneous
  Country: CA (occurrence: CA)
  Receive Date: 20170316
  Receipt Date: 20170426
  Transmission Date: 20170830
  Serious: Yes (Hospitalization, Other)
  Sender: FDA-Public Use
  Company Number: CA-ELI_LILLY_AND_COMPANY-CA201703001650

PATIENT
  Age: 32 Year
  Sex: Male
  Weight: 47.6 kg

DRUGS (1)
  1. CYRAMZA [Suspect]
     Active Substance: RAMUCIRUMAB
     Indication: GASTRIC CANCER STAGE IV
     Dosage: 405 MG, Q2WKS ONCE EVERY 2 WEEKS
     Route: 042
     Dates: start: 20170217, end: 20170220

REACTIONS (3)
  - Anastomotic leak [Recovered/Resolved]
  - Abdominal abscess [Recovered/Resolved]
  - Intestinal perforation [Recovered/Resolved]

NARRATIVE: CASE EVENT DATE: 201702
